FAERS Safety Report 4523266-6 (Version None)
Quarter: 2004Q4

REPORT INFORMATION
  Report Type: 
  Country: None (occurrence: None)
  Receive Date: 20041209
  Receipt Date: 20041209
  Transmission Date: 20050328
  Serious: Yes (Death)
  Sender: FDA-Public Use
  Company Number: None

PATIENT
  Age: 74 Year
  Sex: Male

DRUGS (1)
  1. RETEVASE [Suspect]
     Indication: THROMBOLYSIS
     Dosage: 1 UNIT / HR FOR 4 HR,THEN 0.5 UNITS/HR X 10 HR
     Dates: start: 20030402, end: 20030403

REACTIONS (6)
  - DEPRESSED LEVEL OF CONSCIOUSNESS [None]
  - GENERAL PHYSICAL HEALTH DETERIORATION [None]
  - HAEMORRHAGE INTRACRANIAL [None]
  - HEMIPLEGIA [None]
  - PARALYSIS [None]
  - PUPIL FIXED [None]
